FAERS Safety Report 11048976 (Version 1)
Quarter: 2015Q2

REPORT INFORMATION
  Report Type: Spontaneous
  Country: JP (occurrence: JP)
  Receive Date: 20150420
  Receipt Date: 20150420
  Transmission Date: 20150821
  Serious: Yes (Other)
  Sender: FDA-Public Use
  Company Number: JP-ASTRAZENECA-2015SE36670

PATIENT
  Age: 81 Year
  Sex: Male

DRUGS (8)
  1. LOXONIN [Concomitant]
     Active Substance: LOXOPROFEN SODIUM
     Route: 065
  2. ROZEREM [Concomitant]
     Active Substance: RAMELTEON
     Route: 065
  3. URIEF [Concomitant]
     Active Substance: SILODOSIN
     Route: 065
  4. YOKUKANSAN [Concomitant]
     Active Substance: HERBALS
  5. MAGMITT [Concomitant]
     Active Substance: MAGNESIUM OXIDE
     Route: 065
  6. UBRETID [Concomitant]
     Active Substance: DISTIGMINE BROMIDE
     Route: 065
  7. SEROQUEL [Suspect]
     Active Substance: QUETIAPINE FUMARATE
     Indication: RESTLESSNESS
     Route: 048
  8. BESACOLIN [Concomitant]
     Active Substance: BETHANECHOL CHLORIDE
     Route: 065

REACTIONS (2)
  - Urine flow decreased [Unknown]
  - Intentional product use issue [Unknown]
